FAERS Safety Report 8144602-8 (Version None)
Quarter: 2012Q1

REPORT INFORMATION
  Report Type: 
  Country: None (occurrence: None)
  Receive Date: 20120217
  Receipt Date: 20120207
  Transmission Date: 20120608
  Serious: Yes (Other)
  Sender: FDA-Public Use
  Company Number: DK-JNJFOC-20120205091

PATIENT
  Sex: Female

DRUGS (14)
  1. REMICADE [Suspect]
     Route: 042
     Dates: start: 20011015
  2. IMURAN [Suspect]
     Indication: RHEUMATOID ARTHRITIS
     Dates: start: 20011015
  3. LEFLUNOMIDE [Concomitant]
     Dates: start: 20040513
  4. REMICADE [Suspect]
     Indication: RHEUMATOID ARTHRITIS
     Route: 042
     Dates: start: 20020904
  5. PREDNISOLONE [Concomitant]
     Dates: start: 20011015
  6. CYCLOPHOSPHAMIDE [Concomitant]
     Dates: start: 20040513
  7. MYOCRISIN [Concomitant]
     Dates: start: 20040513
  8. HUMIRA [Suspect]
     Indication: RHEUMATOID ARTHRITIS
     Dates: start: 20040115
  9. HYDROXYCHLOROQUINE SULFATE [Concomitant]
     Dates: start: 20040513
  10. CYCLOSPORINE [Concomitant]
     Dates: start: 20040513
  11. SULFASALAZINE [Concomitant]
     Dates: start: 20040513
  12. METHOTREXATE [Concomitant]
     Dates: start: 20040513
  13. HUMIRA [Suspect]
     Dates: start: 20100503
  14. MABTHERA [Concomitant]
     Indication: RHEUMATOID ARTHRITIS
     Dates: start: 20091014

REACTIONS (1)
  - UTERINE CANCER [None]
